FAERS Safety Report 8440779-5 (Version None)
Quarter: 2012Q2

REPORT INFORMATION
  Report Type: 
  Country: None (occurrence: None)
  Receive Date: 20120615
  Receipt Date: 20120109
  Transmission Date: 20120825
  Serious: No
  Sender: FDA-Public Use
  Company Number: US-NOVEN-11US002217

PATIENT
  Sex: Female

DRUGS (12)
  1. DAYTRANA [Suspect]
     Indication: ATTENTION DEFICIT/HYPERACTIVITY DISORDER
     Dosage: 30 MG, BID
     Route: 062
     Dates: start: 20090101
  2. ANTIBIOTICS [Concomitant]
     Indication: LYME DISEASE
     Route: 048
  3. CEFTIN [Concomitant]
     Indication: LYME DISEASE
     Dosage: 500 MG, BID
     Route: 048
  4. MYCOBUTIN [Concomitant]
     Indication: LYME DISEASE
     Dosage: 150 MG, EVENING
     Route: 048
  5. LEVOXYL [Concomitant]
     Indication: HYPOTHYROIDISM
     Dosage: 3 - 50 MCG TABLETS
     Route: 048
  6. OXYCODONE HCL [Concomitant]
     Indication: PAIN
     Dosage: 2 - 5MG TABS, PRN
     Route: 048
  7. TOPROL-XL [Concomitant]
     Indication: PRODUCT USED FOR UNKNOWN INDICATION
     Dosage: 1/2 50MG TAB BID
     Route: 048
  8. CYTOMEL [Concomitant]
     Indication: HYPOTHYROIDISM
     Dosage: 2 - 5 MCG TABS IN AM, 1 - 5 MCG TAB IN PM
     Route: 048
  9. DIGOXIN [Concomitant]
     Indication: PRODUCT USED FOR UNKNOWN INDICATION
     Dosage: .25 MG, QD
     Route: 048
  10. MAPROTILINE [Concomitant]
     Indication: PRODUCT USED FOR UNKNOWN INDICATION
     Dosage: 50 MG, BEDTIME
  11. DOXYCYCLINE [Concomitant]
     Indication: LYME DISEASE
     Dosage: 2 - 100MG TABS, BID
     Route: 048
  12. RITALIN [Concomitant]
     Indication: PRODUCT USED FOR UNKNOWN INDICATION
     Dosage: 10 MG TAB 4-5X/DAY
     Route: 048

REACTIONS (3)
  - WRONG TECHNIQUE IN DRUG USAGE PROCESS [None]
  - NO ADVERSE EVENT [None]
  - OFF LABEL USE [None]
